FAERS Safety Report 4349908-6 (Version None)
Quarter: 2004Q2

REPORT INFORMATION
  Report Type: 
  Country: None (occurrence: None)
  Receive Date: 20040428
  Receipt Date: 20040428
  Transmission Date: 20050107
  Serious: Yes (Death)
  Sender: FDA-Public Use
  Company Number: None

PATIENT
  Sex: Female

DRUGS (2)
  1. MAGNEVIST [Suspect]
     Indication: BACK PAIN
     Dosage: 20ML ONCE INTRAVENOUS
     Route: 042
     Dates: start: 20030813, end: 20030813
  2. MAGNEVIST [Suspect]
     Indication: PAIN IN EXTREMITY
     Dosage: 20ML ONCE INTRAVENOUS
     Route: 042
     Dates: start: 20030813, end: 20030813

REACTIONS (5)
  - CHEST DISCOMFORT [None]
  - CIRCULATORY COLLAPSE [None]
  - DYSPNOEA [None]
  - NAUSEA [None]
  - SKIN DISCOLOURATION [None]
